FAERS Safety Report 9264108 (Version 2)
Quarter: 2013Q3

REPORT INFORMATION
  Report Type: Spontaneous
  Country: US (occurrence: US)
  Receive Date: 20130430
  Receipt Date: 20130812
  Transmission Date: 20140515
  Serious: Yes (Other)
  Sender: FDA-Public Use
  Company Number: US-009507513-1304USA014849

PATIENT
  Sex: Male

DRUGS (1)
  1. PROPECIA [Suspect]
     Dosage: 1 MG, QD
     Route: 048

REACTIONS (9)
  - Prostate cancer [Unknown]
  - Gastric bypass [Unknown]
  - Meniscus injury [Unknown]
  - Joint injury [Unknown]
  - Hypertension [Unknown]
  - Back pain [Unknown]
  - Shoulder operation [Unknown]
  - Chronic obstructive pulmonary disease [Unknown]
  - Asthma [Unknown]
